FAERS Safety Report 12441406 (Version 1)
Quarter: 2016Q2

REPORT INFORMATION
  Report Type: Spontaneous
  Country: US (occurrence: None)
  Receive Date: 20160606
  Receipt Date: 20160606
  Transmission Date: 20160815
  Serious: No
  Sender: FDA-Public Use
  Company Number: None

PATIENT
  Age: 26 Year
  Sex: Female

DRUGS (1)
  1. JADENU [Suspect]
     Active Substance: DEFERASIROX
     Indication: SICKLE CELL ANAEMIA
     Route: 048
     Dates: start: 20151003

REACTIONS (4)
  - Weight decreased [None]
  - Activities of daily living impaired [None]
  - Stress [None]
  - Decreased appetite [None]

NARRATIVE: CASE EVENT DATE: 201605
